FAERS Safety Report 5808247-4 (Version None)
Quarter: 2008Q3

REPORT INFORMATION
  Report Type: 
  Country: None (occurrence: None)
  Receive Date: 20080711
  Receipt Date: 20080703
  Transmission Date: 20090109
  Serious: Yes (Hospitalization)
  Sender: FDA-Public Use
  Company Number: AT-AMGEN-UK276701

PATIENT
  Sex: Male

DRUGS (8)
  1. PANITUMUMAB [Suspect]
     Indication: COLORECTAL CANCER
     Route: 042
     Dates: start: 20080212
  2. IRINOTECAN [Concomitant]
  3. FLUOROURACIL [Concomitant]
  4. LEUCOVORIN CALCIUM [Concomitant]
  5. HALCION [Concomitant]
     Route: 048
     Dates: start: 20080211
  6. PANTOPRAZOLE SODIUM [Concomitant]
     Route: 048
     Dates: start: 20080212
  7. MAGNESIUM [Concomitant]
     Route: 048
     Dates: start: 20080325
  8. EMEND [Concomitant]
     Route: 048
     Dates: start: 20080413

REACTIONS (1)
  - SUBCUTANEOUS ABSCESS [None]
